FAERS Safety Report 14151248 (Version 1)
Quarter: 2017Q4

REPORT INFORMATION
  Report Type: Spontaneous
  Country: IT (occurrence: IT)
  Receive Date: 20171102
  Receipt Date: 20171102
  Transmission Date: 20180321
  Serious: Yes (Hospitalization, Other)
  Sender: FDA-Public Use
  Company Number: IT-IPCA LABORATORIES LIMITED-IPC201305-000203

PATIENT
  Age: 34 Year
  Sex: Female

DRUGS (5)
  1. METHYLPREDNISOLONE. [Suspect]
     Active Substance: METHYLPREDNISOLONE
     Indication: SYSTEMIC LUPUS ERYTHEMATOSUS
     Dosage: 200 MG TWICE A DAY25 MG/DAY,UNK
  2. HYDROXYCHLOROQUINE SULFATE TABLETS, USP [Suspect]
     Active Substance: HYDROXYCHLOROQUINE SULFATE
     Indication: SYSTEMIC LUPUS ERYTHEMATOSUS
     Dosage: 200 MG, BID
  3. METHYLPREDNISOLONE. [Suspect]
     Active Substance: METHYLPREDNISOLONE
     Dosage: 200 MG TWICE A DAY25 MG/DAY60 MG/DAY8 MG/DAY,UNK
  4. ASPIRIN. [Suspect]
     Active Substance: ASPIRIN
     Indication: SYSTEMIC LUPUS ERYTHEMATOSUS
     Dosage: 200 MG TWICE A DAY25 MG/DAY60 MG/DAY8 MG/DAY100 MG/DAY,UNK
  5. METHYLPREDNISOLONE. [Suspect]
     Active Substance: METHYLPREDNISOLONE
     Dosage: 200 MG TWICE A DAY25 MG/DAY60 MG/DAY,UNK
     Route: 042

REACTIONS (5)
  - Toxicity to various agents [Unknown]
  - Myopathy [Recovered/Resolved]
  - Condition aggravated [Unknown]
  - Exposure during pregnancy [Unknown]
  - Amniotic fluid volume decreased [Unknown]
